FAERS Safety Report 18982310 (Version 1)
Quarter: 2021Q1

REPORT INFORMATION
  Report Type: Spontaneous
  Country: IT (occurrence: IT)
  Receive Date: 20210308
  Receipt Date: 20210308
  Transmission Date: 20210420
  Serious: Yes (Death, Other)
  Sender: FDA-Public Use
  Company Number: IT-BAYER-2021-086297

PATIENT
  Age: 14 Year

DRUGS (1)
  1. REGORAFENIB. [Suspect]
     Active Substance: REGORAFENIB
     Indication: OSTEOSARCOMA

REACTIONS (6)
  - Off label use [None]
  - Product administered to patient of inappropriate age [None]
  - Death [Fatal]
  - Pneumothorax [None]
  - Product use in unapproved indication [None]
  - Metastases to lung [None]
